FAERS Safety Report 19247124 (Version 1)
Quarter: 2021Q2

REPORT INFORMATION
  Report Type: Spontaneous
  Country: US (occurrence: US)
  Receive Date: 20210512
  Receipt Date: 20210512
  Transmission Date: 20210717
  Serious: Yes (Life-Threatening, Hospitalization, Other)
  Sender: FDA-Public Use
  Company Number: US-ADAREPHARM-2021-US-000042

PATIENT
  Age: 27 Year
  Sex: Male
  Weight: 91 kg

DRUGS (24)
  1. FENTANYL. [Interacting]
     Active Substance: FENTANYL
     Route: 040
  2. GUANFACINE. [Interacting]
     Active Substance: GUANFACINE
     Indication: ABNORMAL BEHAVIOUR
     Dosage: EXTENDED?RELEASE
  3. SUCCINYLCHOLINE [Interacting]
     Active Substance: SUCCINYLCHOLINE
     Indication: PARALYSIS
     Route: 042
  4. OXYGEN. [Concomitant]
     Active Substance: OXYGEN
     Dosage: VIA THE ANESTHETIC FACEMASK
  5. SALBUTAMOL [Concomitant]
     Active Substance: ALBUTEROL
     Dosage: AS NEEDED
     Route: 055
  6. PROPRANOLOL [Suspect]
     Active Substance: PROPRANOLOL HYDROCHLORIDE
     Indication: ABNORMAL BEHAVIOUR
  7. PAROXETINE. [Concomitant]
     Active Substance: PAROXETINE
     Dosage: EVERY NIGHT AT BEDTIME
  8. MIDAZOLAM. [Concomitant]
     Active Substance: MIDAZOLAM
     Route: 040
  9. CANNABIS SATIVA [Concomitant]
     Active Substance: CANNABIS SATIVA FLOWERING TOP
     Dosage: EVERY NIGHT AT BEDTIME
  10. SEVOFLURANE. [Suspect]
     Active Substance: SEVOFLURANE
     Indication: GENERAL ANAESTHESIA
  11. JUNIPERUS OXYCEDRUS [Concomitant]
     Dosage: EVERY NIGHT AT BEDTIME
  12. LACOSAMIDE. [Concomitant]
     Active Substance: LACOSAMIDE
  13. ZONISAMIDE. [Concomitant]
     Active Substance: ZONISAMIDE
  14. KETAMINE [Suspect]
     Active Substance: KETAMINE
     Indication: GENERAL ANAESTHESIA
     Route: 030
  15. ZIPRASIDONE. [Concomitant]
     Active Substance: ZIPRASIDONE
  16. MELATONIN [Concomitant]
     Active Substance: MELATONIN
     Dosage: EVERY NIGHT AT BEDTIME
  17. HALOPERIDOL. [Interacting]
     Active Substance: HALOPERIDOL
  18. FLUVOXAMINE [Interacting]
     Active Substance: FLUVOXAMINE
  19. GLYCOPYRROLATE. [Concomitant]
     Active Substance: GLYCOPYRROLATE
     Route: 040
  20. OLANZAPINE. [Concomitant]
     Active Substance: OLANZAPINE
  21. LAMOTRIGINE. [Concomitant]
     Active Substance: LAMOTRIGINE
  22. ALTHAEA OFFICINALIS [Concomitant]
     Dosage: EVERY NIGHT AT BEDTIME
  23. CIMICIFUGA RACEMOSA [Concomitant]
     Active Substance: BLACK COHOSH
     Dosage: EVERY NIGHT AT BEDTIME
  24. PROPOFOL. [Suspect]
     Active Substance: PROPOFOL
     Indication: GENERAL ANAESTHESIA
     Route: 040

REACTIONS (8)
  - Product use in unapproved indication [Unknown]
  - Pulseless electrical activity [Recovered/Resolved]
  - Drug interaction [Unknown]
  - Overdose [Recovered/Resolved]
  - Bradycardia [Recovered/Resolved]
  - Hypotension [Recovered/Resolved]
  - Drug interaction [Recovered/Resolved]
  - Cardiac arrest [Recovered/Resolved]
